FAERS Safety Report 23309154 (Version 1)
Quarter: 2023Q4

REPORT INFORMATION
  Report Type: Spontaneous
  Country: US (occurrence: None)
  Receive Date: 20231215
  Receipt Date: 20231215
  Transmission Date: 20240110
  Serious: Yes (Hospitalization)
  Sender: FDA-Public Use
  Company Number: None

PATIENT
  Age: 50 Year

DRUGS (1)
  1. TRUDHESA [Suspect]
     Active Substance: DIHYDROERGOTAMINE MESYLATE
     Dates: start: 20231007, end: 20231007

REACTIONS (2)
  - Troponin increased [None]
  - Myocardial infarction [None]

NARRATIVE: CASE EVENT DATE: 20231007
